FAERS Safety Report 9144613 (Version 2)
Quarter: 2013Q1

REPORT INFORMATION
  Report Type: Spontaneous
  Country: US (occurrence: US)
  Receive Date: 20130306
  Receipt Date: 20130314
  Transmission Date: 20140127
  Serious: Yes (Other)
  Sender: FDA-Public Use
  Company Number: US-PERRIGO-13US001852

PATIENT
  Age: 52 Year
  Sex: Male
  Weight: 90.7 kg

DRUGS (5)
  1. POLYETHYLENE GLYCOL [Suspect]
     Indication: CONSTIPATION
     Dosage: 15 ML, SINGLE
     Route: 048
     Dates: start: 20130219, end: 20130219
  2. METHOCARBAMOL [Concomitant]
     Indication: MUSCLE SPASMS
     Dosage: UNK
     Route: 065
     Dates: start: 201302
  3. MELOXICAM [Concomitant]
     Indication: PRODUCT USED FOR UNKNOWN INDICATION
     Dosage: UNK
     Route: 065
     Dates: start: 201302
  4. GABAPENTIN [Concomitant]
     Indication: NEURALGIA
     Dosage: UNK
     Route: 065
     Dates: start: 201302
  5. OXYCODONE [Concomitant]
     Indication: PAIN
     Dosage: UNK
     Route: 065
     Dates: start: 201302

REACTIONS (10)
  - Pharyngeal oedema [Recovered/Resolved]
  - Dyspnoea [Recovered/Resolved]
  - Palatal oedema [Recovered/Resolved]
  - Dysphagia [Recovered/Resolved]
  - Local swelling [Recovering/Resolving]
  - Pruritus generalised [Recovered/Resolved]
  - Tongue disorder [Recovered/Resolved]
  - Dry mouth [Recovered/Resolved]
  - Oropharyngeal pain [Recovered/Resolved]
  - Underdose [Unknown]
